FAERS Safety Report 22588448 (Version 1)
Quarter: 2023Q2

REPORT INFORMATION
  Report Type: Spontaneous
  Country: DE (occurrence: DE)
  Receive Date: 20230612
  Receipt Date: 20230612
  Transmission Date: 20230721
  Serious: Yes (Other)
  Sender: FDA-Public Use
  Company Number: None

PATIENT
  Age: 15 Year

DRUGS (4)
  1. TACROLIMUS [Suspect]
     Active Substance: TACROLIMUS
     Indication: Inflammatory bowel disease
     Route: 065
  2. AZATHIOPRINE [Suspect]
     Active Substance: AZATHIOPRINE
     Indication: Inflammatory bowel disease
     Route: 065
  3. ABATACEPT [Suspect]
     Active Substance: ABATACEPT
     Indication: Immunomodulatory therapy
     Dosage: 15 MILLIGRAM/KILOGRAM, BIWEEKLY (STARTED 3 MONTHS PRIOR TO TRANSPLANT)
     Route: 042
  4. SIROLIMUS [Suspect]
     Active Substance: SIROLIMUS
     Indication: Inflammatory bowel disease
     Route: 065

REACTIONS (4)
  - Cytomegalovirus colitis [Unknown]
  - Adenovirus infection [Unknown]
  - Gastritis [Unknown]
  - Off label use [Unknown]
